FAERS Safety Report 11305432 (Version 1)
Quarter: 2015Q3

REPORT INFORMATION
  Report Type: Spontaneous
  Country: US (occurrence: US)
  Receive Date: 20150723
  Receipt Date: 20150723
  Transmission Date: 20151125
  Serious: No
  Sender: FDA-Public Use
  Company Number: US-JNJFOC-20150615089

PATIENT
  Age: 81 Year
  Sex: Female
  Weight: 65.77 kg

DRUGS (4)
  1. PREVACID [Concomitant]
     Active Substance: LANSOPRAZOLE
     Indication: GASTRIC DISORDER
     Dosage: DAILY; INTERVAL: YEARS
     Route: 065
  2. VYTORIN [Concomitant]
     Active Substance: EZETIMIBE\SIMVASTATIN
     Indication: BLOOD CHOLESTEROL
     Dosage: DAILY; INTERVAL: YEARS
     Route: 065
  3. ZYRTEC [Suspect]
     Active Substance: CETIRIZINE HYDROCHLORIDE
     Indication: UPPER-AIRWAY COUGH SYNDROME
     Route: 048
     Dates: start: 20150618, end: 20150618
  4. ZYRTEC [Suspect]
     Active Substance: CETIRIZINE HYDROCHLORIDE
     Indication: UPPER-AIRWAY COUGH SYNDROME
     Route: 048
     Dates: start: 20150617, end: 20150617

REACTIONS (4)
  - Drug ineffective for unapproved indication [Unknown]
  - Product outer packaging issue [Unknown]
  - Off label use [Recovered/Resolved]
  - Abdominal pain upper [Recovered/Resolved]

NARRATIVE: CASE EVENT DATE: 20150618
